FAERS Safety Report 15472368 (Version 1)
Quarter: 2018Q4

REPORT INFORMATION
  Report Type: Spontaneous
  Country: TR (occurrence: TR)
  Receive Date: 20181008
  Receipt Date: 20181008
  Transmission Date: 20190205
  Serious: Yes (Other)
  Sender: FDA-Public Use
  Company Number: TR-TEVA-2018-TR-961801

PATIENT
  Age: 32 Year
  Sex: Female

DRUGS (3)
  1. CEFACLOR. [Suspect]
     Active Substance: CEFACLOR
     Indication: UPPER RESPIRATORY TRACT INFECTION
     Dosage: UNKNOWN FORM STRENGHT
     Route: 048
     Dates: start: 2016
  2. CLARITHROMYCIN. [Suspect]
     Active Substance: CLARITHROMYCIN
     Indication: UPPER RESPIRATORY TRACT INFECTION
     Dosage: UNKNOWN FORM STRENGHT
     Route: 048
     Dates: start: 2016
  3. LEVOFLOXACIN. [Suspect]
     Active Substance: LEVOFLOXACIN
     Indication: ACUTE SINUSITIS
     Dosage: UNKNOWN FORM STRENGHT
     Route: 048
     Dates: start: 2015

REACTIONS (1)
  - Behcet^s syndrome [Unknown]
